FAERS Safety Report 25250012 (Version 3)
Quarter: 2025Q3

REPORT INFORMATION
  Report Type: Report from Study
  Country: CA (occurrence: CA)
  Receive Date: 20250429
  Receipt Date: 20250723
  Transmission Date: 20251020
  Serious: Yes (Other)
  Sender: SANDOZ
  Company Number: CA-SANDOZ-SDZ2023CA022277

PATIENT
  Age: 74 Year
  Sex: Female

DRUGS (2)
  1. ERELZI [Suspect]
     Active Substance: ETANERCEPT-SZZS
     Indication: Rheumatoid arthritis
     Dosage: 50 MG, QW, PEN 50MG SOLUTION FOR INJECTION IN PRE-FILLED PEN
     Route: 058
     Dates: start: 20230818
  2. ERELZI [Suspect]
     Active Substance: ETANERCEPT-SZZS
     Dosage: 50 MG, QW (PRE-FILLED SYRINGE)
     Route: 058

REACTIONS (5)
  - Knee operation [Unknown]
  - Contusion [Unknown]
  - Fine motor skill dysfunction [Unknown]
  - Injection site pain [Recovered/Resolved]
  - Device difficult to use [Unknown]

NARRATIVE: CASE EVENT DATE: 20250407
